FAERS Safety Report 8379031-5 (Version None)
Quarter: 2012Q2

REPORT INFORMATION
  Report Type: 
  Country: None (occurrence: None)
  Receive Date: 20120522
  Receipt Date: 20120522
  Transmission Date: 20120825
  Serious: Yes (Life-Threatening, Disabling)
  Sender: FDA-Public Use
  Company Number: None

PATIENT
  Age: 90 Year
  Sex: Female
  Weight: 39.0093 kg

DRUGS (1)
  1. WARFARIN SODIUM [Suspect]
     Indication: ATRIAL FIBRILLATION
     Dosage: 4MG MON WED, FRI ONCE A DAY ; 3-MG - S,T,T,S,S ONCE A DAY
     Dates: start: 20030201, end: 20120327

REACTIONS (5)
  - HAEMORRHAGE [None]
  - SWELLING [None]
  - SUBDURAL HAEMATOMA [None]
  - FALL [None]
  - BRAIN INJURY [None]
